FAERS Safety Report 4361970-3 (Version None)
Quarter: 2004Q2

REPORT INFORMATION
  Report Type: 
  Country: None (occurrence: None)
  Receive Date: 20040521
  Receipt Date: 20040210
  Transmission Date: 20050107
  Serious: No
  Sender: FDA-Public Use
  Company Number: US-GLAXOSMITHKLINE-A0497607A

PATIENT
  Age: 59 Year
  Sex: Female

DRUGS (5)
  1. WELLBUTRIN XL [Suspect]
     Indication: DEPRESSION
     Dosage: 450MG PER DAY
     Route: 048
     Dates: start: 20040120
  2. XANAX [Concomitant]
  3. AMBIEN [Concomitant]
  4. DURAGESIC [Concomitant]
  5. OXYCODONE [Concomitant]

REACTIONS (5)
  - AGITATION [None]
  - DECREASED APPETITE [None]
  - DRY MOUTH [None]
  - NAUSEA [None]
  - TACHYCARDIA [None]
